FAERS Safety Report 5902112-X (Version None)
Quarter: 2008Q3

REPORT INFORMATION
  Report Type: 
  Country: None (occurrence: None)
  Receive Date: 20080929
  Receipt Date: 20080918
  Transmission Date: 20090109
  Serious: Yes (Hospitalization)
  Sender: FDA-Public Use
  Company Number: JP-PFIZER INC-2008073876

PATIENT
  Sex: Male
  Weight: 57 kg

DRUGS (15)
  1. UNASYN [Suspect]
     Indication: PNEUMONIA
     Route: 042
     Dates: start: 20080526, end: 20080603
  2. FOSMICIN S [Concomitant]
     Route: 042
     Dates: start: 20080519
  3. PL [Concomitant]
     Route: 048
     Dates: start: 20080519
  4. GLYCYRRHIZIN/GLYCINE/L-CYSTEINE HYDROCHLORIDE [Concomitant]
     Indication: ALCOHOLIC LIVER DISEASE
     Route: 042
     Dates: start: 20080527, end: 20080616
  5. OMEPRAZOLE [Concomitant]
     Indication: GASTRIC ULCER HAEMORRHAGE
     Route: 042
     Dates: start: 20080529, end: 20080604
  6. BROMHEXINE HYDROCHLORIDE [Concomitant]
     Route: 048
     Dates: start: 20080519
  7. POTACOL-R [Concomitant]
     Route: 042
     Dates: start: 20080529, end: 20080529
  8. POTACOL-R [Concomitant]
     Route: 042
     Dates: start: 20080608, end: 20080611
  9. VITAMIN B1 TAB [Concomitant]
     Route: 042
     Dates: start: 20080530, end: 20080607
  10. NEOLAMIN 3B INJ. [Concomitant]
     Route: 042
     Dates: start: 20080528, end: 20080610
  11. MUCOSTA [Concomitant]
     Route: 048
     Dates: start: 20080526
  12. LANSOPRAZOLE [Concomitant]
     Route: 048
     Dates: start: 20080528, end: 20080529
  13. LANSOPRAZOLE [Concomitant]
     Route: 048
     Dates: start: 20080705
  14. FAMOTIDINE [Concomitant]
     Route: 048
     Dates: start: 20080526, end: 20080527
  15. ALLOID [Concomitant]
     Route: 048
     Dates: start: 20080529

REACTIONS (1)
  - ALVEOLITIS ALLERGIC [None]
